FAERS Safety Report 20920355 (Version 1)
Quarter: 2022Q2

REPORT INFORMATION
  Report Type: Spontaneous
  Country: GB (occurrence: GB)
  Receive Date: 20220606
  Receipt Date: 20220606
  Transmission Date: 20220720
  Serious: Yes (Other)
  Sender: FDA-Public Use
  Company Number: GB-AMERICAN REGENT INC-2022001538

PATIENT
  Age: 38 Year
  Sex: Female
  Weight: 96 kg

DRUGS (9)
  1. FERINJECT [Suspect]
     Active Substance: FERRIC CARBOXYMALTOSE
     Indication: Ill-defined disorder
     Dosage: UNK UNKNOWN
     Route: 042
     Dates: start: 20220517
  2. DOXYCYCLINE [Concomitant]
     Active Substance: DOXYCYCLINE
     Indication: Ill-defined disorder
     Dosage: TAKE 2 NOW THEN ONE DAILY FOR 4 DAYS
     Route: 065
     Dates: start: 20220331, end: 20220405
  3. DOXYCYCLINE [Concomitant]
     Active Substance: DOXYCYCLINE
     Indication: Infection
  4. FUROSEMIDE [Concomitant]
     Active Substance: FUROSEMIDE
     Indication: Ill-defined disorder
     Dosage: 1 DOSAGE FORM. 1 IN 1 D
     Route: 065
     Dates: start: 20211217
  5. METOPROLOL [Concomitant]
     Active Substance: METOPROLOL
     Indication: Ill-defined disorder
     Dosage: 2 DOSAGE FORMS (1 DOSAGE FORMS, 2 IN 1 D)
     Route: 065
     Dates: start: 20211217
  6. PREDNISOLONE [Concomitant]
     Active Substance: PREDNISOLONE
     Indication: Ill-defined disorder
     Dosage: 6 A DAY FOR 5 DAYS (RESCUE PACK)
     Route: 065
     Dates: start: 20220331, end: 20220405
  7. TRELEGY ELLIPTA [Concomitant]
     Active Substance: FLUTICASONE FUROATE\UMECLIDINIUM BROMIDE\VILANTEROL TRIFENATATE
     Indication: Ill-defined disorder
     Dosage: INHALE 1 DOSE DAILY (1 IN 1 D)
     Dates: start: 20211217
  8. VENTOLIN [Concomitant]
     Active Substance: ALBUTEROL SULFATE
     Indication: Ill-defined disorder
     Dosage: 2 DOSAGE FORMS, AS  NEEDED
     Dates: start: 20220117
  9. WARFARIN [Concomitant]
     Active Substance: WARFARIN
     Indication: Ill-defined disorder
     Dosage: USE AS DIRECTED
     Route: 065
     Dates: start: 20211217

REACTIONS (2)
  - Wheezing [Recovered/Resolved]
  - Dyspnoea [Recovered/Resolved]

NARRATIVE: CASE EVENT DATE: 20220520
